FAERS Safety Report 4470947-9 (Version None)
Quarter: 2004Q4

REPORT INFORMATION
  Report Type: 
  Country: None (occurrence: None)
  Receive Date: 20041011
  Receipt Date: 20040817
  Transmission Date: 20050328
  Serious: Yes (Hospitalization, Other)
  Sender: FDA-Public Use
  Company Number: US-ABBOTT-04P-163-0270816-00

PATIENT
  Sex: Male
  Weight: 79.45 kg

DRUGS (15)
  1. HUMIRA [Suspect]
     Indication: RHEUMATOID ARTHRITIS
     Route: 058
     Dates: start: 20040628, end: 20040816
  2. HUMIRA [Suspect]
     Indication: OSTEOARTHRITIS
  3. AMIODARONE HCL [Concomitant]
     Indication: CARDIAC DISORDER
  4. METOPROLOL [Concomitant]
     Indication: CARDIAC DISORDER
  5. COUMADIN [Concomitant]
     Indication: CARDIAC DISORDER
  6. METHOTREXATE [Concomitant]
     Indication: RHEUMATOID ARTHRITIS
     Route: 048
  7. PREDNISONE [Concomitant]
     Indication: RHEUMATOID ARTHRITIS
     Route: 048
  8. LOSARTAN POTASSIUM [Concomitant]
     Indication: BLOOD PRESSURE
     Route: 048
  9. ATORVASTATIN CALCIUM [Concomitant]
     Indication: BLOOD CHOLESTEROL INCREASED
     Route: 048
  10. CALCIUM [Concomitant]
     Indication: DRUG USE FOR UNKNOWN INDICATION
     Route: 048
  11. TOCOPHEROL CONCENTRATE CAP [Concomitant]
     Indication: DRUG USE FOR UNKNOWN INDICATION
     Route: 048
  12. B-KOMPLEX ^LECIVA^ [Concomitant]
     Indication: DRUG USE FOR UNKNOWN INDICATION
     Route: 048
  13. MULTI-VITAMINS [Concomitant]
     Indication: DRUG USE FOR UNKNOWN INDICATION
     Route: 048
  14. ACETYLSALICYLIC ACID [Concomitant]
     Indication: DRUG USE FOR UNKNOWN INDICATION
     Route: 048
  15. PROGESTERONE [Concomitant]
     Indication: DRUG USE FOR UNKNOWN INDICATION
     Route: 048

REACTIONS (10)
  - ADVERSE EVENT [None]
  - ANOREXIA [None]
  - ASTHENIA [None]
  - COLECTOMY [None]
  - COLOSTOMY [None]
  - FATIGUE [None]
  - HEART RATE INCREASED [None]
  - JOINT SWELLING [None]
  - POSTOPERATIVE ABSCESS [None]
  - PYREXIA [None]
